FAERS Safety Report 17117485 (Version 1)
Quarter: 2019Q4

REPORT INFORMATION
  Report Type: Report from Study
  Country: BE (occurrence: BE)
  Receive Date: 20191205
  Receipt Date: 20191205
  Transmission Date: 20200122
  Serious: Yes (Other)
  Sender: FDA-Public Use
  Company Number: PHHY2015BE144034

PATIENT
  Age: 33 Year
  Sex: Female

DRUGS (1)
  1. GILENYA [Suspect]
     Active Substance: FINGOLIMOD HYDROCHLORIDE
     Indication: MULTIPLE SCLEROSIS
     Dosage: 0.5 MG, QD
     Route: 048
     Dates: start: 20140513

REACTIONS (16)
  - High density lipoprotein increased [Unknown]
  - Nasopharyngitis [Unknown]
  - Alopecia [Recovered/Resolved]
  - Ear infection [Unknown]
  - Urinary tract infection [Recovered/Resolved]
  - Ovulation pain [Unknown]
  - White blood cell count decreased [Unknown]
  - Lymphocyte count decreased [Recovering/Resolving]
  - Joint dislocation [Unknown]
  - Dental necrosis [Recovered/Resolved]
  - Ovulation pain [Recovered/Resolved]
  - Toothache [Unknown]
  - Respiratory tract infection [Recovered/Resolved]
  - Hypotension [Unknown]
  - Ovulation pain [Recovered/Resolved]
  - Sinusitis [Unknown]

NARRATIVE: CASE EVENT DATE: 20140804
